FAERS Safety Report 10184384 (Version 1)
Quarter: 2014Q2

REPORT INFORMATION
  Report Type: Spontaneous
  Country: GB (occurrence: GB)
  Receive Date: 20140521
  Receipt Date: 20140521
  Transmission Date: 20141212
  Serious: Yes (Hospitalization, Other)
  Sender: FDA-Public Use
  Company Number: GB-ROCHE-1403119

PATIENT
  Age: 55 Year
  Sex: Female

DRUGS (13)
  1. RIBAVIRIN [Suspect]
     Indication: HEPATITIS C
     Route: 065
     Dates: start: 20130823
  2. RIBAVIRIN [Suspect]
     Route: 065
     Dates: start: 20130905
  3. PEGINTERFERON ALFA-2B [Suspect]
     Indication: HEPATITIS C
     Route: 065
     Dates: start: 20130823
  4. PEGINTERFERON ALFA-2B [Suspect]
     Route: 065
     Dates: start: 20130805
  5. INCIVO [Suspect]
     Indication: HEPATITIS C
     Route: 048
     Dates: start: 20130823
  6. AMITRIPTYLINE [Concomitant]
     Route: 065
  7. NIFEDIPINE [Concomitant]
  8. TRAMADOL [Concomitant]
  9. LANSOPRAZOLE [Concomitant]
  10. CALCICHEW [Concomitant]
  11. LANSOPRAZOLE [Concomitant]
  12. NICOTINE [Concomitant]
  13. BOCEPREVIR [Concomitant]

REACTIONS (5)
  - Renal failure acute [Unknown]
  - Anaemia [Unknown]
  - Nausea [Unknown]
  - Vomiting [Unknown]
  - Hepatocellular carcinoma [Unknown]
